FAERS Safety Report 5861470-5 (Version None)
Quarter: 2008Q3

REPORT INFORMATION
  Report Type: 
  Country: None (occurrence: None)
  Receive Date: 20080827
  Receipt Date: 20080521
  Transmission Date: 20090109
  Serious: No
  Sender: FDA-Public Use
  Company Number: US-ABBOTT-08P-163-0452787-00

PATIENT
  Sex: Male

DRUGS (3)
  1. COATED PDS [Suspect]
     Indication: BLOOD CHOLESTEROL INCREASED
     Route: 058
     Dates: start: 19980101
  2. ACETYLSALICYLIC ACID SRT [Suspect]
     Indication: DRUG THERAPY
     Route: 048
     Dates: start: 20030101
  3. SIMVASTATIN [Concomitant]
     Indication: BLOOD CHOLESTEROL INCREASED
     Route: 048
     Dates: start: 20030101

REACTIONS (2)
  - FLUSHING [None]
  - INCREASED TENDENCY TO BRUISE [None]
